FAERS Safety Report 8162774-6 (Version None)
Quarter: 2012Q1

REPORT INFORMATION
  Report Type: 
  Country: None (occurrence: None)
  Receive Date: 20120103
  Receipt Date: 20110912
  Transmission Date: 20120608
  Serious: No
  Sender: FDA-Public Use
  Company Number: AE-2011-001485

PATIENT
  Age: 59 Year
  Sex: Male

DRUGS (5)
  1. INCIVEK [Suspect]
     Dosage: (3 IN 1 D)
     Dates: start: 20110909
  2. PEGINTERFERON (PEGINTERFERON ALFA-2A) [Concomitant]
  3. RIBAVIRIN [Concomitant]
  4. JANUVIA [Concomitant]
  5. METFORMIN/GLYBURIDE (METFORMIN) [Concomitant]

REACTIONS (1)
  - DIARRHOEA HAEMORRHAGIC [None]
